FAERS Safety Report 5584809-7 (Version None)
Quarter: 2008Q1

REPORT INFORMATION
  Report Type: 
  Country: None (occurrence: None)
  Receive Date: 20080104
  Receipt Date: 20071227
  Transmission Date: 20080703
  Serious: Yes (Other)
  Sender: FDA-Public Use
  Company Number: CHPA2007US14511

PATIENT

DRUGS (1)
  1. 4 WAY FAST ACTING NASAL SPRAY (NCH) (PHENYLEPHRINE) NASAL SPRAY [Suspect]
     Dosage: NASAL
     Route: 045

REACTIONS (2)
  - DRUG DEPENDENCE [None]
  - INTENTIONAL DRUG MISUSE [None]
